FAERS Safety Report 8471092-8 (Version None)
Quarter: 2012Q2

REPORT INFORMATION
  Report Type: 
  Country: None (occurrence: None)
  Receive Date: 20120627
  Receipt Date: 20120615
  Transmission Date: 20120825
  Serious: Yes (Hospitalization)
  Sender: FDA-Public Use
  Company Number: US-SANOFI-AVENTIS-2012SA033537

PATIENT
  Age: 55 Year
  Sex: Female
  Weight: 63.18 kg

DRUGS (3)
  1. AMBIEN CR [Suspect]
     Indication: INSOMNIA
     Route: 048
     Dates: start: 20070113, end: 20070113
  2. MECLIZINE [Concomitant]
     Indication: VERTIGO
     Dates: start: 20050101
  3. DYAZIDE [Concomitant]
     Indication: VERTIGO
     Dates: start: 20050101

REACTIONS (5)
  - CONFUSIONAL STATE [None]
  - RESPIRATORY DEPRESSION [None]
  - CATATONIA [None]
  - UNRESPONSIVE TO STIMULI [None]
  - DYSARTHRIA [None]
